FAERS Safety Report 14308562 (Version 9)
Quarter: 2019Q4

REPORT INFORMATION
  Report Type: Report from Study
  Country: FR (occurrence: FR)
  Receive Date: 20171220
  Receipt Date: 20191004
  Transmission Date: 20200122
  Serious: Yes (Death, Life-Threatening, Hospitalization, Other)
  Sender: FDA-Public Use
  Company Number: FR-PFIZER INC-2016326055

PATIENT
  Age: 59 Year
  Sex: Male
  Weight: 97 kg

DRUGS (2)
  1. ZANOSAR [Suspect]
     Active Substance: STREPTOZOCIN
     Indication: CHEMOTHERAPY
     Dosage: 500 MG/M2, CYCLIC (FROM D1 TO D5 (1000 MG/D) WITH RESUMPTION AT DAY 42)
     Dates: start: 20151228, end: 20160118
  2. ADRIAMYCIN [Suspect]
     Active Substance: DOXORUBICIN HYDROCHLORIDE
     Indication: CHEMOTHERAPY
     Dosage: 50 MG/M2, CYCLIC (ON DAY 1 AND DAY 21)
     Dates: start: 20151228, end: 20160118

REACTIONS (7)
  - Anaemia [Unknown]
  - Acute kidney injury [Fatal]
  - Lymphocyte count decreased [Unknown]
  - Fluid retention [Not Recovered/Not Resolved]
  - Leukopenia [Unknown]
  - Neutropenia [Unknown]
  - Thrombocytopenia [Unknown]

NARRATIVE: CASE EVENT DATE: 20160103
